FAERS Safety Report 9735526 (Version 2)
Quarter: 2015Q3

REPORT INFORMATION
  Report Type: Spontaneous
  Country: US (occurrence: US)
  Receive Date: 20131206
  Receipt Date: 20150804
  Transmission Date: 20151125
  Serious: No
  Sender: FDA-Public Use
  Company Number: US-GILEAD-2009-0023454

PATIENT
  Age: 38 Year
  Sex: Female
  Weight: 79.38 kg

DRUGS (20)
  1. LETAIRIS [Suspect]
     Active Substance: AMBRISENTAN
     Indication: PULMONARY ARTERIAL HYPERTENSION
     Route: 048
     Dates: start: 20080710
  2. ASPIRIN. [Concomitant]
     Active Substance: ASPIRIN
  3. LORAZEPAM. [Concomitant]
     Active Substance: LORAZEPAM
  4. PREDNISONE. [Concomitant]
     Active Substance: PREDNISONE
  5. CELLCEPT [Concomitant]
     Active Substance: MYCOPHENOLATE MOFETIL\MYCOPHENOLATE MOFETIL HYDROCHLORIDE
  6. PLAQUENIL [Concomitant]
     Active Substance: HYDROXYCHLOROQUINE SULFATE
  7. NAPROXEN. [Concomitant]
     Active Substance: NAPROXEN
  8. REVATIO [Concomitant]
     Active Substance: SILDENAFIL CITRATE
  9. AMBIEN [Concomitant]
     Active Substance: ZOLPIDEM TARTRATE
  10. CELEXA [Concomitant]
     Active Substance: CITALOPRAM HYDROBROMIDE
  11. TRAMADOL. [Concomitant]
     Active Substance: TRAMADOL
  12. ADVAIR 250-50 [Concomitant]
  13. NEXIUM [Concomitant]
     Active Substance: ESOMEPRAZOLE MAGNESIUM
  14. CALCIUM [Concomitant]
     Active Substance: CALCIUM
  15. DAILY MULTIVITAMIN [Concomitant]
     Active Substance: VITAMINS
  16. FLONASE [Concomitant]
     Active Substance: FLUTICASONE PROPIONATE
  17. VITAMIN E [Concomitant]
     Active Substance: .ALPHA.-TOCOPHEROL
  18. COZAAR [Concomitant]
     Active Substance: LOSARTAN POTASSIUM
  19. ALBUTEROL. [Concomitant]
     Active Substance: ALBUTEROL
  20. VITAMIN C [Concomitant]
     Active Substance: ASCORBIC ACID

REACTIONS (1)
  - Skin disorder [Unknown]
